FAERS Safety Report 5326356-3 (Version None)
Quarter: 2007Q2

REPORT INFORMATION
  Report Type: 
  Country: None (occurrence: None)
  Receive Date: 20070514
  Receipt Date: 20070514
  Transmission Date: 20071010
  Serious: Yes (Hospitalization)
  Sender: FDA-Public Use
  Company Number: None

PATIENT
  Age: 56 Year
  Sex: Female
  Weight: 124 kg

DRUGS (2)
  1. CETUXIMAB 500 MG/M2 - BRISTOL-MYERS SQUIBB [Suspect]
     Indication: COLON CANCER METASTATIC
     Dosage: 1200 MG Q 2 WEEKS INTRAVENOUS
     Route: 042
     Dates: start: 20070413, end: 20070427
  2. IRINOTECAN HCL [Suspect]
     Indication: COLON CANCER METASTATIC
     Dosage: 432 MG Q2 WEEKS INTRAVENOUS
     Route: 042
     Dates: start: 20070413, end: 20070427

REACTIONS (6)
  - ABDOMINAL PAIN LOWER [None]
  - CONSTIPATION [None]
  - FATIGUE [None]
  - GASTROINTESTINAL NEOPLASM [None]
  - INSOMNIA [None]
  - NAUSEA [None]
